FAERS Safety Report 10475104 (Version 2)
Quarter: 2014Q4

REPORT INFORMATION
  Report Type: Other
  Country: US (occurrence: US)
  Receive Date: 20140925
  Receipt Date: 20141030
  Transmission Date: 20150528
  Serious: Yes (Hospitalization, Other)
  Sender: FDA-Public Use
  Company Number: US-SHIRE-US201406026

PATIENT
  Age: 35 Year
  Sex: Female
  Weight: 67.12 kg

DRUGS (3)
  1. FIRAZYR [Concomitant]
     Active Substance: ICATIBANT ACETATE
     Indication: HEREDITARY ANGIOEDEMA
     Dosage: UNK UNK, UNKNOWN
     Route: 058
  2. CINRYZE [Suspect]
     Active Substance: HUMAN C1-ESTERASE INHIBITOR
     Indication: HEREDITARY ANGIOEDEMA
     Dosage: 1500 UNITS, OTHER(MONDAY, WEDNESDAY, FRIDAY)
     Route: 042
     Dates: start: 20120510
  3. CINRYZE [Suspect]
     Active Substance: HUMAN C1-ESTERASE INHIBITOR
     Indication: PROPHYLAXIS

REACTIONS (7)
  - Hereditary angioedema [Not Recovered/Not Resolved]
  - Localised oedema [Not Recovered/Not Resolved]
  - Inappropriate schedule of drug administration [Unknown]
  - Abdominal pain upper [Not Recovered/Not Resolved]
  - Prescribed overdose [Unknown]
  - Genital swelling [Unknown]
  - Dehydration [Unknown]

NARRATIVE: CASE EVENT DATE: 20120510
